FAERS Safety Report 9826244 (Version 1)
Quarter: 2014Q1

REPORT INFORMATION
  Report Type: Spontaneous
  Country: US (occurrence: US)
  Receive Date: 20140117
  Receipt Date: 20140117
  Transmission Date: 20141002
  Serious: Yes (Other)
  Sender: FDA-Public Use
  Company Number: US-009507513-1401USA005690

PATIENT
  Sex: Female

DRUGS (10)
  1. VICTRELIS [Suspect]
     Indication: HEPATITIS C
     Dosage: 600 MG, BID
     Route: 048
     Dates: start: 20130810, end: 20131111
  2. REBETOL [Suspect]
     Indication: HEPATITIS C
     Dosage: 600 MG, QD
     Route: 048
     Dates: start: 20130712, end: 20131111
  3. PEGASYS [Suspect]
     Indication: HEPATITIS C
     Dosage: 180 MICROGRAM, QW
     Route: 058
     Dates: start: 20130712, end: 20131111
  4. LEXAPRO [Concomitant]
     Indication: DEPRESSION
     Route: 048
  5. SYNTHROID [Concomitant]
     Indication: HYPOTHYROIDISM
  6. LASIX (FUROSEMIDE) [Concomitant]
     Indication: HYPERTENSION
     Route: 048
  7. PRINIVIL [Concomitant]
     Indication: HYPERTENSION
     Dosage: 2.5 MG, QD
     Route: 048
  8. ELAVIL (MADE BY MERCK, MARKETED BY ZENECA) [Concomitant]
     Dosage: 10 MG, QD
     Route: 048
  9. LYRICA [Concomitant]
     Dosage: 350 MG, BID
  10. NOVOLOG [Concomitant]
     Indication: DIABETES MELLITUS
     Dosage: 70 IU, TID
     Route: 058

REACTIONS (1)
  - Hyperglycaemia [Recovering/Resolving]
